FAERS Safety Report 5795172-0 (Version None)
Quarter: 2008Q2

REPORT INFORMATION
  Report Type: 
  Country: None (occurrence: None)
  Receive Date: 20080630
  Receipt Date: 20080529
  Transmission Date: 20081010
  Serious: Yes (Other)
  Sender: FDA-Public Use
  Company Number: US-BRISTOL-MYERS SQUIBB COMPANY-14209811

PATIENT
  Age: 69 Year
  Sex: Female
  Weight: 57 kg

DRUGS (1)
  1. ORENCIA [Suspect]

REACTIONS (2)
  - CHRONIC OBSTRUCTIVE PULMONARY DISEASE [None]
  - WEIGHT DECREASED [None]
